FAERS Safety Report 5005104-0 (Version None)
Quarter: 2006Q2

REPORT INFORMATION
  Report Type: 
  Country: None (occurrence: None)
  Receive Date: 20060518
  Receipt Date: 20050727
  Transmission Date: 20061013
  Serious: Yes (Other)
  Sender: FDA-Public Use
  Company Number: PHEH2005US08404

PATIENT
  Age: 70 Year

DRUGS (1)
  1. AREDIA [Suspect]
     Dosage: UNK, UNK

REACTIONS (1)
  - OSTEONECROSIS [None]
